FAERS Safety Report 23469087 (Version 3)
Quarter: 2024Q1

REPORT INFORMATION
  Report Type: Report from Study
  Country: FR (occurrence: FR)
  Receive Date: 20240202
  Receipt Date: 20240227
  Transmission Date: 20240410
  Serious: Yes (Other)
  Sender: FDA-Public Use
  Company Number: FR-Merck Healthcare KGaA-2024004197

PATIENT
  Age: 14 Year
  Sex: Female
  Weight: 50 kg

DRUGS (3)
  1. SAIZEN [Interacting]
     Active Substance: SOMATROPIN
     Indication: Growth retardation
     Route: 058
     Dates: start: 20240120, end: 20240201
  2. SAIZEN [Interacting]
     Active Substance: SOMATROPIN
     Indication: Growth hormone deficiency
  3. DIETHYLSTILBESTROL [Interacting]
     Active Substance: DIETHYLSTILBESTROL
     Indication: Product used for unknown indication

REACTIONS (8)
  - Loss of consciousness [Recovered/Resolved]
  - Syncope [Recovered/Resolved]
  - Malaise [Unknown]
  - Growth failure [Unknown]
  - Drug intolerance [Unknown]
  - Nausea [Recovered/Resolved]
  - Headache [Recovered/Resolved]
  - Drug interaction [Unknown]

NARRATIVE: CASE EVENT DATE: 20240120
